FAERS Safety Report 6976084-3 (Version None)
Quarter: 2010Q3

REPORT INFORMATION
  Report Type: 
  Country: None (occurrence: None)
  Receive Date: 20100910
  Receipt Date: 20100902
  Transmission Date: 20110219
  Serious: Yes (Other)
  Sender: FDA-Public Use
  Company Number: CHPA2010US14134

PATIENT
  Age: 47 Year
  Sex: Female
  Weight: 60.317 kg

DRUGS (1)
  1. EXCEDRIN (MIGRAINE) [Suspect]
     Indication: MIGRAINE
     Dosage: 1-3 TABLETS IN A DAY AS REQUIRED
     Route: 048

REACTIONS (3)
  - MULTIPLE SCLEROSIS [None]
  - OVERDOSE [None]
  - THERAPEUTIC RESPONSE DECREASED [None]
